FAERS Safety Report 9333508 (Version 1)
Quarter: 2013Q2

REPORT INFORMATION
  Report Type: Spontaneous
  Country: FR (occurrence: FR)
  Receive Date: 20130606
  Receipt Date: 20130606
  Transmission Date: 20140414
  Serious: Yes (Other)
  Sender: FDA-Public Use
  Company Number: FR-GILEAD-2013-0076442

PATIENT
  Age: 20 Year
  Sex: Male

DRUGS (1)
  1. EVIPLERA [Suspect]
     Indication: HIV INFECTION
     Dosage: 1 DF, QD
     Route: 048
     Dates: end: 20130321

REACTIONS (3)
  - Psoriasis [Not Recovered/Not Resolved]
  - Genotype drug resistance test positive [Unknown]
  - Genotype drug resistance test positive [Unknown]
